FAERS Safety Report 9083549 (Version 1)
Quarter: 2013Q1

REPORT INFORMATION
  Report Type: Report from Study
  Country: US (occurrence: US)
  Receive Date: 20130131
  Receipt Date: 20130131
  Transmission Date: 20140127
  Serious: No
  Sender: FDA-Public Use
  Company Number: US-ABBOTT-12P-163-1004869-00

PATIENT
  Age: 55 Year
  Sex: Female

DRUGS (6)
  1. HUMIRA [Suspect]
     Indication: RHEUMATOID ARTHRITIS
     Dates: start: 201208
  2. METHOTREXATE [Concomitant]
     Indication: PRODUCT USED FOR UNKNOWN INDICATION
  3. CORTISONE [Concomitant]
     Indication: PRODUCT USED FOR UNKNOWN INDICATION
     Dosage: IN KNEES, FEET, HANDS, BACK, AND HIP
  4. ZYFLO [Concomitant]
     Indication: ASTHMA
  5. FOLIC ACID [Concomitant]
     Indication: PRODUCT USED FOR UNKNOWN INDICATION
     Dosage: 1MG DAILY
  6. ZYRTEC [Concomitant]
     Indication: HYPERSENSITIVITY
     Dosage: DAILY

REACTIONS (4)
  - Rash [Not Recovered/Not Resolved]
  - Arthralgia [Unknown]
  - Erythema [Unknown]
  - Pain [Not Recovered/Not Resolved]
